FAERS Safety Report 21897641 (Version 1)
Quarter: 2023Q1

REPORT INFORMATION
  Report Type: Spontaneous
  Country: JP (occurrence: JP)
  Receive Date: 20230123
  Receipt Date: 20230123
  Transmission Date: 20230417
  Serious: Yes (Other)
  Sender: FDA-Public Use
  Company Number: JP-PFIZER INC-202300025294

PATIENT
  Age: 95 Year
  Sex: Female

DRUGS (2)
  1. HALCION [Suspect]
     Active Substance: TRIAZOLAM
     Dosage: UNK
     Route: 048
  2. LYRICA [Suspect]
     Active Substance: PREGABALIN
     Indication: Lumbar spinal stenosis
     Dosage: 75 MG
     Route: 048

REACTIONS (3)
  - Drug dependence [Unknown]
  - Dysstasia [Unknown]
  - Speech disorder [Unknown]
